FAERS Safety Report 11902372 (Version 4)
Quarter: 2016Q1

REPORT INFORMATION
  Report Type: Report from Study
  Country: US (occurrence: US)
  Receive Date: 20160108
  Receipt Date: 20160111
  Transmission Date: 20160526
  Serious: No
  Sender: FDA-Public Use
  Company Number: US-ABBVIE-15P-163-1496162-00

PATIENT
  Age: 45 Year
  Sex: Female

DRUGS (1)
  1. VIEKIRA PAK [Suspect]
     Active Substance: DASABUVIR\OMBITASVIR\PARITAPREVIR\RITONAVIR
     Indication: HEPATITIS C
     Dosage: IN THE AM AND PM
     Route: 048
     Dates: start: 20150820

REACTIONS (8)
  - Muscle spasms [Unknown]
  - Dyspnoea [Unknown]
  - Emotional disorder [Unknown]
  - Faeces pale [Unknown]
  - Nausea [Recovered/Resolved]
  - Crying [Unknown]
  - Irritability [Unknown]
  - Abdominal pain [Unknown]

NARRATIVE: CASE EVENT DATE: 20151105
